FAERS Safety Report 26081118 (Version 2)
Quarter: 2025Q4

REPORT INFORMATION
  Report Type: Spontaneous
  Country: EU (occurrence: EU)
  Receive Date: 20251124
  Receipt Date: 20251221
  Transmission Date: 20260117
  Serious: Yes (Other)
  Sender: SANOFI AVENTIS
  Company Number: EU-DialogSolutions-SAAVPROD-PI844464-C1

PATIENT
  Age: 62 Year
  Sex: Female

DRUGS (5)
  1. VANDETANIB [Suspect]
     Active Substance: VANDETANIB
     Indication: Familial medullary thyroid cancer
     Dosage: 300 MG
     Dates: start: 201107, end: 201108
  2. VANDETANIB [Suspect]
     Active Substance: VANDETANIB
     Dosage: 200 MG
     Dates: start: 201108, end: 202301
  3. VANDETANIB [Suspect]
     Active Substance: VANDETANIB
     Dosage: UNK
     Dates: start: 202301, end: 202302
  4. LOSAZIDE [Concomitant]
     Indication: Hypertension
     Dosage: UNK
  5. AMLODIPINE [Concomitant]
     Active Substance: AMLODIPINE BESYLATE
     Indication: Hypertension
     Dosage: UNK

REACTIONS (5)
  - Squamous cell carcinoma of skin [Recovering/Resolving]
  - Pigmentation disorder [Recovering/Resolving]
  - Skin lesion [Recovering/Resolving]
  - Basal cell carcinoma [Recovering/Resolving]
  - Hypertension [Unknown]

NARRATIVE: CASE EVENT DATE: 20110801
